FAERS Safety Report 9924047 (Version 1)
Quarter: 2014Q1

REPORT INFORMATION
  Report Type: Spontaneous
  Country: DE (occurrence: DE)
  Receive Date: 20140225
  Receipt Date: 20140225
  Transmission Date: 20141002
  Serious: Yes (Congenital Anomaly, Other)
  Sender: FDA-Public Use
  Company Number: DE-MYLANLABS-2014S1003251

PATIENT
  Age: 1 Day
  Sex: Female
  Weight: 3.34 kg

DRUGS (3)
  1. CITALOPRAM [Suspect]
     Indication: ANXIETY DISORDER
     Dosage: 20 [MG/D ]/ 18.03.2012 TILL 16.05.12: 20 MG/D, OTHERWISE 10 MG/D
     Route: 064
     Dates: start: 20120315, end: 20120914
  2. L-THYROXIN [Concomitant]
     Indication: HYPOTHYROIDISM
     Dosage: 100 [G/D ]/ ALTERNATIVELY 100 AND 75G THE DAY
     Route: 064
     Dates: start: 20111216, end: 20120914
  3. FOLIC ACID [Concomitant]
     Indication: PROPHYLAXIS OF NEURAL TUBE DEFECT
     Dosage: 0.8 [MG/D ]
     Route: 064
     Dates: start: 20111216, end: 20120907

REACTIONS (5)
  - Atrial septal defect [Unknown]
  - Feeding disorder neonatal [Recovered/Resolved]
  - Somnolence [Recovered/Resolved]
  - Pulmonary valve stenosis congenital [Not Recovered/Not Resolved]
  - Exposure during pregnancy [Recovered/Resolved]
